FAERS Safety Report 6532566-X (Version None)
Quarter: 2010Q1

REPORT INFORMATION
  Report Type: 
  Country: None (occurrence: None)
  Receive Date: 20100111
  Receipt Date: 20100105
  Transmission Date: 20100710
  Serious: Yes (Death)
  Sender: FDA-Public Use
  Company Number: US-ROCHE-623912

PATIENT
  Sex: Female

DRUGS (3)
  1. XELODA [Suspect]
     Route: 065
     Dates: start: 20090213
  2. DILANTIN [Suspect]
     Indication: DRUG USE FOR UNKNOWN INDICATION
     Dosage: TAKEN 200 MG IN A.M. AND 300 MG IN P.M.
     Route: 065
  3. DILANTIN [Suspect]
     Route: 065

REACTIONS (2)
  - HYPERSOMNIA [None]
  - MALIGNANT NEOPLASM PROGRESSION [None]
